FAERS Safety Report 25637866 (Version 1)
Quarter: 2025Q3

REPORT INFORMATION
  Report Type: Other
  Country: US (occurrence: US)
  Receive Date: 20250804
  Receipt Date: 20250804
  Transmission Date: 20251021
  Serious: Yes (Hospitalization, Other)
  Sender: BIONPHARMA INC.
  Company Number: US-Bion-015160

PATIENT
  Age: 33 Year
  Sex: Male

DRUGS (1)
  1. LOPERAMIDE HYDROCHLORIDE [Suspect]
     Active Substance: LOPERAMIDE HYDROCHLORIDE
     Indication: Prophylaxis

REACTIONS (5)
  - Cardiotoxicity [Unknown]
  - Seizure [Unknown]
  - Ventricular arrhythmia [Unknown]
  - Drug abuse [Unknown]
  - Intentional overdose [Unknown]
